FAERS Safety Report 9816778 (Version 1)
Quarter: 2014Q1

REPORT INFORMATION
  Report Type: Spontaneous
  Country: US (occurrence: US)
  Receive Date: 20140114
  Receipt Date: 20140114
  Transmission Date: 20141002
  Serious: No
  Sender: FDA-Public Use
  Company Number: US-ENDO PHARMACEUTICALS INC.-PERC20130160

PATIENT
  Sex: Male
  Weight: 99.88 kg

DRUGS (4)
  1. PERCOCET [Suspect]
     Indication: PAIN
     Dosage: UNKNOWN
     Route: 048
  2. LYRICA [Suspect]
     Indication: FIBROMYALGIA
     Route: 048
     Dates: start: 2012
  3. LYRICA [Suspect]
     Indication: PAIN
     Route: 048
     Dates: start: 2012
  4. VALIUM [Concomitant]
     Indication: MUSCLE SPASMS
     Dosage: UNKNOWN
     Route: 048

REACTIONS (2)
  - Intervertebral disc degeneration [Unknown]
  - Drug ineffective [Unknown]
